FAERS Safety Report 10492460 (Version 2)
Quarter: 2015Q2

REPORT INFORMATION
  Report Type: Spontaneous
  Country: US (occurrence: US)
  Receive Date: 20141002
  Receipt Date: 20150603
  Transmission Date: 20150821
  Serious: No
  Sender: FDA-Public Use
  Company Number: US-GLAXOSMITHKLINE-A1071368A

PATIENT
  Sex: Female

DRUGS (3)
  1. ALBUTEROL. [Concomitant]
     Active Substance: ALBUTEROL
  2. ADVAIR DISKUS [Suspect]
     Active Substance: FLUTICASONE PROPIONATE\SALMETEROL XINAFOATE
     Indication: BRONCHITIS
  3. ADVAIR DISKUS [Suspect]
     Active Substance: FLUTICASONE PROPIONATE\SALMETEROL XINAFOATE
     Indication: ASTHMA
     Dosage: 1 PUFF(S), 1D
     Route: 055
     Dates: start: 2005

REACTIONS (8)
  - Intentional underdose [Not Recovered/Not Resolved]
  - Mouth haemorrhage [Recovered/Resolved]
  - Chest discomfort [Not Recovered/Not Resolved]
  - Nasopharyngitis [Recovering/Resolving]
  - Hypertension [Not Recovered/Not Resolved]
  - Oropharyngeal plaque [Recovered/Resolved]
  - Back injury [Unknown]
  - Asthma [Not Recovered/Not Resolved]
